FAERS Safety Report 23595916 (Version 1)
Quarter: 2024Q1

REPORT INFORMATION
  Report Type: Other
  Country: CA (occurrence: CA)
  Receive Date: 20240305
  Receipt Date: 20240305
  Transmission Date: 20240410
  Serious: Yes (Other)
  Sender: FDA-Public Use
  Company Number: CA-PFIZER INC-202400055030

PATIENT
  Age: 76 Year
  Sex: Male

DRUGS (4)
  1. CISPLATIN [Suspect]
     Active Substance: CISPLATIN
     Indication: Oesophageal carcinoma
     Dosage: 80 MG/M2, EVERY 3 WEEKS
     Route: 065
  2. CARBOPLATIN [Suspect]
     Active Substance: CARBOPLATIN
     Indication: Oesophageal carcinoma
     Dosage: UNK
     Route: 065
  3. CAPECITABINE [Suspect]
     Active Substance: CAPECITABINE
     Indication: Oesophageal carcinoma
     Dosage: 825 MG/M2, 1 EVERY 21 DAYS
     Route: 065
  4. KEYTRUDA [Suspect]
     Active Substance: PEMBROLIZUMAB
     Indication: Oesophageal carcinoma
     Dosage: 200 MG, 1 EVERY 21 DAYS

REACTIONS (6)
  - Acute kidney injury [Unknown]
  - Decreased appetite [Unknown]
  - Fatigue [Unknown]
  - Oesophageal haemorrhage [Unknown]
  - Performance status decreased [Unknown]
  - Pulmonary embolism [Unknown]
